FAERS Safety Report 9125001 (Version 1)
Quarter: 2013Q1

REPORT INFORMATION
  Report Type: Spontaneous
  Country: US (occurrence: US)
  Receive Date: 20130227
  Receipt Date: 20130227
  Transmission Date: 20140127
  Serious: No
  Sender: FDA-Public Use
  Company Number: US-BAYER-2013-022367

PATIENT
  Age: 43 Year
  Sex: Male

DRUGS (1)
  1. DESONATE GEL [Suspect]
     Indication: PSORIASIS
     Dosage: UNK, BID
     Dates: start: 20130130

REACTIONS (3)
  - Off label use [None]
  - Therapeutic response unexpected [None]
  - Drug ineffective [None]
